FAERS Safety Report 4880969-1 (Version None)
Quarter: 2005Q4

REPORT INFORMATION
  Report Type: 
  Country: None (occurrence: None)
  Receive Date: 20051223
  Receipt Date: 20051003
  Transmission Date: 20060501
  Serious: No
  Sender: FDA-Public Use
  Company Number: 05P-163-0312715-00

PATIENT
  Age: 54 Year
  Sex: Female

DRUGS (9)
  1. HUMIRA [Suspect]
     Indication: ARTHRITIS
     Dosage: 40 MG, 1 IN 2 WK, SUBCUTANEOUS
     Route: 058
     Dates: start: 20050429, end: 20050902
  2. HUMIRA [Suspect]
     Indication: ARTHRITIS
     Dosage: 40 MG, 1 IN 2 WK, SUBCUTANEOUS
     Route: 058
     Dates: start: 20050930
  3. FOLIC ACID [Concomitant]
  4. LOTEPREDNOL ETABONATE [Concomitant]
  5. METHOTREXATE [Concomitant]
  6. RABEPRAZOLE SODIUM [Concomitant]
  7. MULTIVITAMIN [Concomitant]
  8. CALCIUM GLUCONATE [Concomitant]
  9. MIDRID [Concomitant]

REACTIONS (2)
  - DERMATITIS CONTACT [None]
  - PROCEDURAL COMPLICATION [None]
